FAERS Safety Report 15456197 (Version 1)
Quarter: 2018Q3

REPORT INFORMATION
  Report Type: Spontaneous
  Country: US (occurrence: US)
  Receive Date: 20180928
  Receipt Date: 20180928
  Transmission Date: 20181010
  Serious: Yes (Other)
  Sender: FDA-Public Use
  Company Number: None

PATIENT
  Age: 43 Year
  Sex: Male
  Weight: 107.1 kg

DRUGS (1)
  1. CVS HEALTH SINUS RELIEF [Suspect]
     Active Substance: OXYMETAZOLINE HYDROCHLORIDE
     Indication: NASAL CRUSTING
     Route: 045
     Dates: start: 20180919, end: 20180923

REACTIONS (5)
  - Poor quality drug administered [None]
  - Malaise [None]
  - Sinusitis [None]
  - Cough [None]
  - Product quality issue [None]

NARRATIVE: CASE EVENT DATE: 20180919
